FAERS Safety Report 7505972-4 (Version None)
Quarter: 2011Q2

REPORT INFORMATION
  Report Type: 
  Country: None (occurrence: None)
  Receive Date: 20110526
  Receipt Date: 20110513
  Transmission Date: 20111010
  Serious: Yes (Other)
  Sender: FDA-Public Use
  Company Number: PHHY2011FR41759

PATIENT
  Age: 36 Year
  Sex: Male
  Weight: 165 kg

DRUGS (1)
  1. RASILEZ HCT [Suspect]
     Indication: HYPERTENSION
     Dosage: 30 DF, UNK

REACTIONS (4)
  - BLOOD PRESSURE ABNORMAL [None]
  - POLYURIA [None]
  - INTENTIONAL OVERDOSE [None]
  - ASTHENIA [None]
